FAERS Safety Report 7999216-7 (Version None)
Quarter: 2011Q4

REPORT INFORMATION
  Report Type: 
  Country: None (occurrence: None)
  Receive Date: 20111221
  Receipt Date: 20111213
  Transmission Date: 20120403
  Serious: Yes (Other)
  Sender: FDA-Public Use
  Company Number: US-ASTRAZENECA-2010SE24469

PATIENT
  Age: 74 Year
  Sex: Male

DRUGS (3)
  1. RHINOCORT [Suspect]
     Route: 045
  2. NEXIUM [Suspect]
     Route: 048
  3. TOPROL-XL [Suspect]
     Route: 048

REACTIONS (4)
  - PROSTATE CANCER [None]
  - HYPERTENSION [None]
  - MALAISE [None]
  - DRUG INEFFECTIVE [None]
